FAERS Safety Report 5649918-2 (Version None)
Quarter: 2008Q1

REPORT INFORMATION
  Report Type: 
  Country: None (occurrence: None)
  Receive Date: 20080304
  Receipt Date: 20080221
  Transmission Date: 20080703
  Serious: Yes (Death, Hospitalization)
  Sender: FDA-Public Use
  Company Number: US-BAYER-200814710NA

PATIENT
  Age: 42 Year
  Sex: Female
  Weight: 49 kg

DRUGS (5)
  1. AVELOX [Suspect]
     Indication: DRUG USE FOR UNKNOWN INDICATION
     Dosage: TOTAL DAILY DOSE: 400 MG  UNIT DOSE: 400 MG
     Route: 048
     Dates: end: 20070131
  2. BACTRIM [Concomitant]
     Route: 048
     Dates: end: 20070131
  3. DURAGESIC-100 [Concomitant]
     Dosage: TOTAL DAILY DOSE: 50 ?G  UNIT DOSE: 50 ?G
     Route: 061
     Dates: end: 20070131
  4. ATIVAN [Concomitant]
     Route: 048
     Dates: end: 20070131
  5. ROXANOL [Concomitant]
     Route: 048
     Dates: end: 20070131

REACTIONS (14)
  - CARDIO-RESPIRATORY ARREST [None]
  - DYSPNOEA [None]
  - MALIGNANT MELANOMA [None]
  - METASTASES TO ADRENALS [None]
  - METASTASES TO BONE [None]
  - METASTASES TO LUNG [None]
  - METASTASES TO PLEURA [None]
  - METASTASES TO SPLEEN [None]
  - METASTASES TO THE RESPIRATORY SYSTEM [None]
  - NAUSEA [None]
  - PLEURAL EFFUSION [None]
  - PNEUMONIA [None]
  - PYREXIA [None]
  - VOMITING [None]
